FAERS Safety Report 16135977 (Version 1)
Quarter: 2019Q1

REPORT INFORMATION
  Report Type: Spontaneous
  Country: FR (occurrence: FR)
  Receive Date: 20190329
  Receipt Date: 20190329
  Transmission Date: 20190418
  Serious: Yes (Hospitalization)
  Sender: FDA-Public Use
  Company Number: FR-009507513-1903FRA008065

PATIENT
  Age: 1 Year
  Sex: Male
  Weight: 10.8 kg

DRUGS (1)
  1. CELESTENE [Suspect]
     Active Substance: BETAMETHASONE SODIUM PHOSPHATE
     Indication: ASTHMATIC CRISIS
     Dosage: 40 UNK
     Route: 048
     Dates: start: 20181231, end: 20181231

REACTIONS (2)
  - Decreased appetite [Recovered/Resolved]
  - Agitation [Recovered/Resolved]

NARRATIVE: CASE EVENT DATE: 20181231
